FAERS Safety Report 4881228-3 (Version None)
Quarter: 2005Q4

REPORT INFORMATION
  Report Type: 
  Country: None (occurrence: None)
  Receive Date: 20051212
  Receipt Date: 20051021
  Transmission Date: 20060501
  Serious: Yes (Hospitalization)
  Sender: FDA-Public Use
  Company Number: 2005-00318

PATIENT
  Age: 61 Year
  Sex: Female
  Weight: 71.2 kg

DRUGS (12)
  1. VELCADE [Suspect]
     Indication: MULTIPLE MYELOMA
     Dosage: SEE IMAGE
     Dates: start: 20040914, end: 20041102
  2. VELCADE [Suspect]
     Indication: MULTIPLE MYELOMA
     Dosage: SEE IMAGE
     Dates: start: 20050125, end: 20050426
  3. LACTULOSE [Concomitant]
  4. ACIPHEX [Concomitant]
  5. COUMADIN [Concomitant]
  6. VITAMIN E [Concomitant]
  7. DARVOCET-N (PARACETAMOL, DEXTROPROPOXYPHENE NAPSILATE) [Concomitant]
  8. SENOKOT [Concomitant]
  9. ZOMETA [Concomitant]
  10. INFLUENZA VACCINE (INFLUENZA VACCINE) [Concomitant]
  11. ZANTAC [Concomitant]
  12. OSCAL 500-D (COLECALCIFEROL, CALCIUM) [Concomitant]

REACTIONS (13)
  - ABDOMINAL DISCOMFORT [None]
  - BACK PAIN [None]
  - CONSTIPATION [None]
  - ELECTROLYTE IMBALANCE [None]
  - ILEUS [None]
  - MORAXELLA INFECTION [None]
  - NEUROPATHY [None]
  - PAIN [None]
  - PAIN IN EXTREMITY [None]
  - PARAESTHESIA [None]
  - PRODUCTIVE COUGH [None]
  - RADICULOPATHY [None]
  - SPINAL CORD COMPRESSION [None]
